FAERS Safety Report 8552661 (Version 3)
Quarter: 2013Q2

REPORT INFORMATION
  Report Type: Spontaneous
  Country: US (occurrence: None)
  Receive Date: 20120327
  Receipt Date: 20120709
  Transmission Date: 20140414
  Serious: Yes (Other)
  Sender: FDA-Public Use
  Company Number: PHHY2011US09157

PATIENT
  Age: 64 Year
  Sex: Female

DRUGS (1)
  1. GLEEVEC [Suspect]
     Indication: CHRONIC MYELOID LEUKAEMIA
     Dosage: 400 MG, DAILY, ORAL; 400 MG, DAILY, ORAL
     Route: 048
     Dates: start: 20110112

REACTIONS (14)
  - THROMBOSIS [None]
  - EYE HAEMORRHAGE [None]
  - EYE PRURITUS [None]
  - Lacrimation increased [None]
  - EYE IRRITATION [None]
  - VISUAL IMPAIRMENT [None]
  - OEDEMA PERIPHERAL [None]
  - NAUSEA [None]
  - SWELLING FACE [None]
  - DYSGEUSIA [None]
  - PAIN [None]
  - Fluid retention [None]
  - Rash pruritic [None]
  - Pain in extremity [None]
